FAERS Safety Report 9041968 (Version 1)
Quarter: 2013Q1

REPORT INFORMATION
  Report Type: Report from Study
  Country: US (occurrence: US)
  Receive Date: 20130129
  Receipt Date: 20130129
  Transmission Date: 20140127
  Serious: Yes (Other)
  Sender: FDA-Public Use
  Company Number: US-ABBOTT-12P-163-0901639-00

PATIENT
  Age: 26 Year
  Sex: Female
  Weight: 113.5 kg

DRUGS (8)
  1. HUMIRA 40 MG/ 0.8 ML PRE-FILLED SYRINGE [Suspect]
     Indication: RHEUMATOID ARTHRITIS
     Dates: start: 2005
  2. CONCERTA [Concomitant]
     Indication: ATTENTION DEFICIT/HYPERACTIVITY DISORDER
  3. WELLBUTRIN [Concomitant]
     Indication: DEPRESSION
  4. METHOTREXATE [Concomitant]
     Indication: RHEUMATOID ARTHRITIS
  5. LEVOTHYROXINE [Concomitant]
     Indication: HYPOTHYROIDISM
  6. DAYPRO [Concomitant]
     Indication: PAIN
  7. ALLEGRA [Concomitant]
     Indication: HYPERSENSITIVITY
  8. UNKNOWN ANTIBIOTICS [Concomitant]
     Indication: SURGERY
     Route: 042
     Dates: start: 20111108, end: 20111110

REACTIONS (4)
  - Foot fracture [Not Recovered/Not Resolved]
  - Road traffic accident [Recovered/Resolved]
  - Limb injury [Recovered/Resolved]
  - Balance disorder [Recovered/Resolved]
